FAERS Safety Report 21306695 (Version 1)
Quarter: 2022Q3

REPORT INFORMATION
  Report Type: Spontaneous
  Country: US (occurrence: US)
  Receive Date: 20220908
  Receipt Date: 20220908
  Transmission Date: 20221027
  Serious: No
  Sender: FDA-Public Use
  Company Number: US-009507513-1711USA006135

PATIENT
  Age: 36 Year
  Sex: Male

DRUGS (4)
  1. SINEMET [Suspect]
     Active Substance: CARBIDOPA\LEVODOPA
     Indication: Parkinsonism
     Dosage: 87.5-350, TID (1050 MG OF LEVODOPA DAILY)
     Route: 048
  2. SINEMET [Suspect]
     Active Substance: CARBIDOPA\LEVODOPA
     Indication: HIV-associated neurocognitive disorder
     Dosage: 12.5-50MG, TID WITH GRADUAL TITRATION
  3. AMANTADINE [Concomitant]
     Active Substance: AMANTADINE
     Indication: Parkinsonism
     Dosage: 100 MG, TWICE A DAY
  4. AMANTADINE [Concomitant]
     Active Substance: AMANTADINE
     Indication: HIV-associated neurocognitive disorder

REACTIONS (1)
  - Off label use [Unknown]
